FAERS Safety Report 8594283-4 (Version None)
Quarter: 2012Q3

REPORT INFORMATION
  Report Type: 
  Country: None (occurrence: None)
  Receive Date: 20120815
  Receipt Date: 20120812
  Transmission Date: 20120928
  Serious: Yes (Hospitalization)
  Sender: FDA-Public Use
  Company Number: US-BIOGENIDEC-2012BI000963

PATIENT
  Age: 49 Year
  Sex: Female

DRUGS (18)
  1. PROTONIX [Concomitant]
  2. TYLENOL [Concomitant]
  3. VITAMIN D [Concomitant]
  4. DIAZEPAM [Concomitant]
  5. NEURONTIN [Concomitant]
  6. PROVIGIL [Concomitant]
  7. MIRALAX [Concomitant]
  8. AMITRIPTYLINE HCL [Concomitant]
  9. SENOKOT [Concomitant]
     Route: 048
  10. COLACE [Concomitant]
  11. AMITRIPTYLINE HCL [Concomitant]
  12. BACLOFEN [Concomitant]
  13. VITAMIN B-12 [Concomitant]
  14. BENADRYL [Concomitant]
  15. BACLOFEN [Concomitant]
  16. DULCOLAX [Concomitant]
  17. TYSABRI [Suspect]
     Indication: MULTIPLE SCLEROSIS
     Route: 042
     Dates: start: 20071016, end: 20110815
  18. FERROUS SULFATE TAB [Concomitant]

REACTIONS (5)
  - URINARY TRACT INFECTION ENTEROCOCCAL [None]
  - INFLUENZA [None]
  - PROGRESSIVE MULTIFOCAL LEUKOENCEPHALOPATHY [None]
  - PAIN [None]
  - MULTIPLE SCLEROSIS RELAPSE [None]
